FAERS Safety Report 12810034 (Version 2)
Quarter: 2016Q4

REPORT INFORMATION
  Report Type: Spontaneous
  Country: US (occurrence: US)
  Receive Date: 20161005
  Receipt Date: 20161228
  Transmission Date: 20170207
  Serious: No
  Sender: FDA-Public Use
  Company Number: US-009507513-1610USA000035

PATIENT
  Sex: Female
  Weight: 68.03 kg

DRUGS (2)
  1. BCG VACCINE USP [Suspect]
     Active Substance: BCG VACCINE
     Dosage: UNK
     Dates: start: 20160929
  2. BCG VACCINE USP [Suspect]
     Active Substance: BCG VACCINE
     Indication: TUBERCULOSIS BLADDER
     Dosage: UNK

REACTIONS (2)
  - Occupational exposure to product [Recovered/Resolved]
  - Accidental exposure to product [Recovered/Resolved]

NARRATIVE: CASE EVENT DATE: 20160929
